FAERS Safety Report 12494708 (Version 1)
Quarter: 2016Q2

REPORT INFORMATION
  Report Type: Spontaneous
  Country: PT (occurrence: PT)
  Receive Date: 20160624
  Receipt Date: 20160624
  Transmission Date: 20160815
  Serious: Yes (Disabling)
  Sender: FDA-Public Use
  Company Number: PT-ROCHE-1779168

PATIENT
  Sex: Female
  Weight: 64 kg

DRUGS (2)
  1. RIVOTRIL [Suspect]
     Active Substance: CLONAZEPAM
     Indication: INSOMNIA
     Dosage: IN THE MORNING AND AT NIGHT, FOR 10 DAYS
     Route: 048
     Dates: start: 20160525
  2. RIVOTRIL [Suspect]
     Active Substance: CLONAZEPAM
     Dosage: HALF A TABLET BEFORE GOING TO SLEEP
     Route: 048
     Dates: start: 20160614

REACTIONS (7)
  - Somnolence [Recovered/Resolved]
  - Dizziness [Recovered/Resolved]
  - Insomnia [Recovered/Resolved]
  - Tremor [Recovered/Resolved]
  - Off label use [Unknown]
  - Abnormal dreams [Recovered/Resolved]
  - Malaise [Unknown]

NARRATIVE: CASE EVENT DATE: 20160525
